FAERS Safety Report 5914774-1 (Version None)
Quarter: 2008Q4

REPORT INFORMATION
  Report Type: 
  Country: None (occurrence: None)
  Receive Date: 20081010
  Receipt Date: 20081001
  Transmission Date: 20090506
  Serious: Yes (Hospitalization)
  Sender: FDA-Public Use
  Company Number: DE-AMGEN-US311136

PATIENT
  Sex: Female
  Weight: 14 kg

DRUGS (5)
  1. ENBREL [Suspect]
     Indication: JUVENILE ARTHRITIS
     Route: 058
     Dates: start: 20070706, end: 20080714
  2. LEUCOVORIN CALCIUM [Concomitant]
     Route: 048
     Dates: start: 20070501
  3. LANTAREL [Concomitant]
     Route: 065
     Dates: start: 20070501
  4. PREDNISOLONE [Concomitant]
     Route: 048
     Dates: start: 20070501
  5. IBUPROFEN [Concomitant]
     Route: 065

REACTIONS (2)
  - CONDITION AGGRAVATED [None]
  - RHEUMATOID ARTHRITIS [None]
